FAERS Safety Report 4450772-5 (Version None)
Quarter: 2004Q3

REPORT INFORMATION
  Report Type: 
  Country: None (occurrence: None)
  Receive Date: 20040913
  Receipt Date: 20040520
  Transmission Date: 20050211
  Serious: No
  Sender: FDA-Public Use
  Company Number: 2004-BP-04014BP(0)

PATIENT
  Age: 54 Year
  Sex: Female
  Weight: 52.9 kg

DRUGS (1)
  1. SPIRIVA [Suspect]
     Indication: CHRONIC OBSTRUCTIVE AIRWAYS DISEASE
     Dosage: 18 MCG (18 MCG), IH
     Dates: start: 20040518, end: 20040518

REACTIONS (3)
  - OEDEMA PERIPHERAL [None]
  - RASH [None]
  - URTICARIA [None]
